FAERS Safety Report 11981999 (Version 1)
Quarter: 2016Q1

REPORT INFORMATION
  Report Type: Spontaneous
  Country: JP (occurrence: JP)
  Receive Date: 20160201
  Receipt Date: 20160201
  Transmission Date: 20160526
  Serious: Yes (Other)
  Sender: FDA-Public Use
  Company Number: JP-CIPLA LTD.-2016JP00381

PATIENT

DRUGS (4)
  1. INTERFERON-BETA [Suspect]
     Active Substance: INTERFERON BETA
     Indication: CHRONIC HEPATITIS B
     Dosage: WITH LAMIVUDINE FOR 4 WEEKS
     Route: 042
  2. LAMIVUDINE. [Suspect]
     Active Substance: LAMIVUDINE
     Indication: CHRONIC HEPATITIS B
     Dosage: 100 MG, QD ALONE FOR 16-32 WEEKS
     Route: 048
  3. LAMIVUDINE. [Suspect]
     Active Substance: LAMIVUDINE
     Dosage: 100 MG, QD WITH INTERFERON-BETA FOR 4 WEEKS
     Route: 048
  4. INTERFERON-BETA [Suspect]
     Active Substance: INTERFERON BETA
     Dosage: ALONE FOR 20 WEEKS
     Route: 042

REACTIONS (1)
  - Hepatocellular carcinoma [Unknown]
